FAERS Safety Report 9076200 (Version 1)
Quarter: 2013Q1

REPORT INFORMATION
  Report Type: Report from Study
  Country: US (occurrence: US)
  Receive Date: 20130129
  Receipt Date: 20130129
  Transmission Date: 20140127
  Serious: No
  Sender: FDA-Public Use
  Company Number: US-ABBOTT-12P-163-0933932-00

PATIENT
  Age: 61 None
  Sex: Female

DRUGS (14)
  1. HUMIRA 40 MG/0.8 ML PEN [Suspect]
     Indication: PSORIASIS
     Dates: start: 20120507, end: 20120507
  2. HUMIRA 40 MG/0.8 ML PEN [Suspect]
     Indication: PSORIATIC ARTHROPATHY
     Route: 058
     Dates: start: 20120507
  3. LANTUS [Concomitant]
     Indication: DIABETES MELLITUS
  4. HUMALOG [Concomitant]
     Indication: DIABETES MELLITUS
  5. AMLODIPINE [Concomitant]
     Indication: HYPERTENSION
  6. VITAMIN D [Concomitant]
     Indication: VITAMIN SUPPLEMENTATION
  7. LASIX [Concomitant]
     Indication: HYPERTENSION
  8. K-DUR [Concomitant]
     Indication: MINERAL SUPPLEMENTATION
  9. GENTAMYCIN [Concomitant]
     Indication: PRODUCT USED FOR UNKNOWN INDICATION
  10. CORTISONE [Concomitant]
     Indication: PRODUCT USED FOR UNKNOWN INDICATION
     Route: 061
  11. HYDROCODONE BITARTRATE AND ACETAMINOPHEN [Concomitant]
     Indication: PAIN
  12. TRIAMINICOLONE CREAM [Concomitant]
     Indication: PRODUCT USED FOR UNKNOWN INDICATION
  13. DIFLUCAN [Concomitant]
     Indication: PRODUCT USED FOR UNKNOWN INDICATION
  14. NISTATIN [Concomitant]
     Indication: PRODUCT USED FOR UNKNOWN INDICATION

REACTIONS (4)
  - Nausea [Recovered/Resolved]
  - Abdominal discomfort [Recovered/Resolved]
  - Oropharyngeal pain [Not Recovered/Not Resolved]
  - Nausea [Not Recovered/Not Resolved]
